FAERS Safety Report 17151785 (Version 1)
Quarter: 2019Q4

REPORT INFORMATION
  Report Type: Spontaneous
  Country: CN (occurrence: CN)
  Receive Date: 20191212
  Receipt Date: 20191212
  Transmission Date: 20200122
  Serious: No
  Sender: FDA-Public Use
  Company Number: None

PATIENT
  Age: 35 Year
  Sex: Female
  Weight: 60 kg

DRUGS (3)
  1. ZOLPIDEM [Concomitant]
     Active Substance: ZOLPIDEM TARTRATE
  2. AMBIEN [Suspect]
     Active Substance: ZOLPIDEM TARTRATE
     Indication: INSOMNIA
     Dosage: ?          QUANTITY:1 TABLET(S);?
     Route: 048
  3. XANAX [Concomitant]
     Active Substance: ALPRAZOLAM

REACTIONS (3)
  - Sleep-related eating disorder [None]
  - Somnambulism [None]
  - Drug dependence [None]

NARRATIVE: CASE EVENT DATE: 20191016
